FAERS Safety Report 25144757 (Version 1)
Quarter: 2025Q2

REPORT INFORMATION
  Report Type: Spontaneous
  Country: SG (occurrence: SG)
  Receive Date: 20250401
  Receipt Date: 20250401
  Transmission Date: 20250717
  Serious: Yes (Hospitalization, Other)
  Sender: AZURITY PHARMACEUTICALS
  Company Number: SG-AZURITY PHARMACEUTICALS, INC.-AZR202503-000892

PATIENT
  Age: 76 Year
  Sex: Female

DRUGS (1)
  1. METHOTREXATE [Suspect]
     Active Substance: METHOTREXATE
     Indication: Panniculitis
     Dosage: 7.5 MILLIGRAM, WEEKLY (ONCE PER WEEK FOR 2 WEEKS)
     Route: 065

REACTIONS (5)
  - Oral mucosa erosion [Recovering/Resolving]
  - Toxicity to various agents [Recovered/Resolved]
  - Pancytopenia [Recovered/Resolved]
  - Herpes simplex [Recovered/Resolved]
  - Product use in unapproved indication [Unknown]
